FAERS Safety Report 7809878-2 (Version None)
Quarter: 2011Q4

REPORT INFORMATION
  Report Type: 
  Country: None (occurrence: None)
  Receive Date: 20111012
  Receipt Date: 20111007
  Transmission Date: 20120403
  Serious: Yes (Hospitalization, Other)
  Sender: FDA-Public Use
  Company Number: FR-PFIZER INC-2011239498

PATIENT
  Age: 79 Year
  Sex: Female

DRUGS (6)
  1. SPASFON [Concomitant]
     Dosage: 2 DF, 3X/DAY
  2. PARACETAMOL [Concomitant]
     Dosage: 1 G, 3X/DAY
  3. LYRICA [Suspect]
     Indication: ARTHRALGIA
     Dosage: UNK
     Route: 048
     Dates: start: 20110201, end: 20110727
  4. LYRICA [Suspect]
     Indication: SCIATICA
  5. LEVOTHYROXINE SODIUM [Concomitant]
     Dosage: 75 UG, 1X/DAY
  6. ZOLPIDEM [Concomitant]
     Dosage: 0.5 DF, 1X/DAY

REACTIONS (6)
  - COGNITIVE DISORDER [None]
  - APHASIA [None]
  - DISORIENTATION [None]
  - INCOHERENT [None]
  - CONFUSIONAL STATE [None]
  - ABNORMAL BEHAVIOUR [None]
